FAERS Safety Report 8144347-4 (Version None)
Quarter: 2012Q1

REPORT INFORMATION
  Report Type: 
  Country: None (occurrence: None)
  Receive Date: 20120103
  Receipt Date: 20111006
  Transmission Date: 20120608
  Serious: No
  Sender: FDA-Public Use
  Company Number: AE-2011-000588

PATIENT
  Age: 59 Year
  Sex: Female
  Weight: 56.6996 kg

DRUGS (12)
  1. PEROOCET (OXYCOCET) [Concomitant]
  2. LYRICA [Concomitant]
  3. FLEXERIL [Concomitant]
  4. INCIVEK [Suspect]
     Dosage: 2250 MG (750 MG, 3 IN 1 D), ORAL
     Route: 048
     Dates: start: 20110719, end: 20110728
  5. PEGASYS [Concomitant]
  6. ZANTAC [Concomitant]
  7. DOCUSATE (DOCUSATE) [Concomitant]
  8. GABAPENTIN [Concomitant]
  9. CLEMASTINE FUMARATE [Concomitant]
  10. RIBAVIRIN [Concomitant]
  11. NORVASC [Concomitant]
  12. WOMENS VITAMIN (VITAMINS) [Concomitant]

REACTIONS (5)
  - ASTHENIA [None]
  - DIZZINESS [None]
  - FATIGUE [None]
  - SOMNOLENCE [None]
  - RASH [None]
